FAERS Safety Report 5375587-5 (Version None)
Quarter: 2007Q2

REPORT INFORMATION
  Report Type: 
  Country: None (occurrence: None)
  Receive Date: 20070629
  Receipt Date: 20070622
  Transmission Date: 20071010
  Serious: Yes (Other)
  Sender: FDA-Public Use
  Company Number: FR-PFIZER INC-2007051786

PATIENT
  Age: 47 Year
  Sex: Female

DRUGS (3)
  1. LYRICA [Suspect]
     Dosage: DAILY DOSE:300MG
  2. TEMOZOLOMIDE [Concomitant]
  3. PARACETAMOL [Concomitant]

REACTIONS (1)
  - NEPHROTIC SYNDROME [None]
